FAERS Safety Report 12719256 (Version 1)
Quarter: 2016Q3

REPORT INFORMATION
  Report Type: Spontaneous
  Country: CN (occurrence: CN)
  Receive Date: 20160907
  Receipt Date: 20160907
  Transmission Date: 20161109
  Serious: Yes (Other)
  Sender: FDA-Public Use
  Company Number: CN-TAKEDA-2016MPI007767

PATIENT

DRUGS (2)
  1. METHYLPREDNISOLONE. [Suspect]
     Active Substance: METHYLPREDNISOLONE
     Indication: PLASMA CELL MYELOMA
     Dosage: UNK
     Route: 065
  2. VELCADE [Suspect]
     Active Substance: BORTEZOMIB
     Indication: PLASMA CELL MYELOMA
     Dosage: UNK
     Route: 065

REACTIONS (15)
  - Hypoxic-ischaemic encephalopathy [Unknown]
  - Epilepsy [Unknown]
  - Lung infection [Recovered/Resolved]
  - Pancytopenia [Unknown]
  - Pneumonia [Unknown]
  - Hypokalaemia [Unknown]
  - Hepatic function abnormal [Recovered/Resolved]
  - Neurotoxicity [Unknown]
  - Upper respiratory tract infection [Recovered/Resolved]
  - Urinary tract infection [Unknown]
  - Gastrointestinal disorder [Recovered/Resolved]
  - Neuropathy peripheral [Recovered/Resolved]
  - Fatigue [Recovered/Resolved]
  - Thrombocytopenia [Recovered/Resolved]
  - Herpes zoster [Unknown]
